FAERS Safety Report 4584536-9 (Version None)
Quarter: 2005Q1

REPORT INFORMATION
  Report Type: 
  Country: None (occurrence: None)
  Receive Date: 20050216
  Receipt Date: 20040819
  Transmission Date: 20050727
  Serious: Yes (Hospitalization)
  Sender: FDA-Public Use
  Company Number: DE-ABBOTT-04P-062-0271159-00

PATIENT
  Sex: Female

DRUGS (6)
  1. HUMIRA [Suspect]
     Indication: RHEUMATOID ARTHRITIS
     Route: 058
     Dates: start: 20040101, end: 20040201
  2. HUMIRA [Suspect]
     Dates: start: 20030301, end: 20040101
  3. LEFLUNOMIDE [Suspect]
     Indication: DRUG USE FOR UNKNOWN INDICATION
  4. RITUXIMAB [Suspect]
     Indication: DRUG USE FOR UNKNOWN INDICATION
     Dosage: FIRST CYCLE
     Dates: start: 20040101, end: 20040101
  5. RITUXIMAB [Suspect]
     Dosage: SECOND CYCLE
     Dates: start: 20040201, end: 20040201
  6. RIFAMPICIN [Concomitant]
     Indication: TUBERCULOSIS PROPHYLAXIS

REACTIONS (5)
  - BACTEROIDES INFECTION [None]
  - BURSITIS [None]
  - HIP ARTHROPLASTY [None]
  - LUNG ABSCESS [None]
  - LUNG NEOPLASM [None]
